FAERS Safety Report 20863191 (Version 1)
Quarter: 2022Q2

REPORT INFORMATION
  Report Type: Spontaneous
  Country: IN (occurrence: IN)
  Receive Date: 20220523
  Receipt Date: 20220523
  Transmission Date: 20220721
  Serious: Yes (Death, Other)
  Sender: FDA-Public Use
  Company Number: IN-PFIZER INC-202200403970

PATIENT
  Age: 71 Year
  Sex: Male

DRUGS (1)
  1. SUTENT [Suspect]
     Active Substance: SUNITINIB MALATE
     Indication: Papillary renal cell carcinoma
     Dosage: 25 MG
     Route: 048
     Dates: start: 202202

REACTIONS (3)
  - Death [Fatal]
  - Breath sounds abnormal [Unknown]
  - Neoplasm progression [Unknown]
